FAERS Safety Report 21644878 (Version 3)
Quarter: 2023Q2

REPORT INFORMATION
  Report Type: Spontaneous
  Country: US (occurrence: US)
  Receive Date: 20221125
  Receipt Date: 20230419
  Transmission Date: 20230722
  Serious: No
  Sender: FDA-Public Use
  Company Number: US-DSJP-DSU-2022-142599

PATIENT
  Sex: Female

DRUGS (1)
  1. ENHERTU [Suspect]
     Active Substance: FAM-TRASTUZUMAB DERUXTECAN-NXKI
     Indication: Breast cancer metastatic
     Dosage: UNK
     Route: 065

REACTIONS (6)
  - Alopecia [Not Recovered/Not Resolved]
  - Cancer surgery [Recovered/Resolved]
  - Ileostomy [Unknown]
  - Gastrointestinal disorder [Unknown]
  - Insomnia [Unknown]
  - Headache [Unknown]

NARRATIVE: CASE EVENT DATE: 20220901
